FAERS Safety Report 8195653-9 (Version None)
Quarter: 2012Q1

REPORT INFORMATION
  Report Type: 
  Country: None (occurrence: None)
  Receive Date: 20120308
  Receipt Date: 20120227
  Transmission Date: 20120608
  Serious: Yes (Death, Other)
  Sender: FDA-Public Use
  Company Number: US-JNJFOC-20100701863

PATIENT
  Sex: Male
  Weight: 66.23 kg

DRUGS (21)
  1. SIMPONI [Suspect]
     Indication: RHEUMATOID ARTHRITIS
     Route: 058
     Dates: start: 20090520, end: 20100501
  2. NEULASTA [Concomitant]
     Indication: LEUKOPENIA
     Dates: start: 20110301
  3. SIMPONI [Suspect]
     Route: 058
     Dates: start: 20101004
  4. ZOFRAN [Concomitant]
  5. PROTONIX [Concomitant]
  6. PHENERGAN [Concomitant]
  7. LORTAB [Concomitant]
     Indication: PAIN
     Dosage: 7.5/500
  8. LEVAQUIN [Concomitant]
     Indication: PYREXIA
  9. LOMOTIL [Concomitant]
  10. PROCRIT [Concomitant]
  11. CELEXA [Concomitant]
  12. REMICADE [Suspect]
     Indication: RHEUMATOID ARTHRITIS
     Route: 042
  13. PREDNISONE [Concomitant]
  14. MAGIC MOUTHWASH [Concomitant]
  15. TRAZODONE HCL [Concomitant]
     Indication: SLEEP DISORDER
  16. XANAX [Concomitant]
  17. SOLU-MEDROL [Concomitant]
  18. TAMIFLU [Concomitant]
  19. BLEOMYCIN SULFATE [Suspect]
     Indication: HODGKIN'S DISEASE
  20. MAGNESIUM OXIDE [Concomitant]
     Route: 048
  21. POTASSIUM CHLORIDE [Concomitant]

REACTIONS (5)
  - ACUTE RESPIRATORY DISTRESS SYNDROME [None]
  - CHOLELITHIASIS [None]
  - HODGKIN'S DISEASE [None]
  - INTERSTITIAL LUNG DISEASE [None]
  - DIARRHOEA INFECTIOUS [None]
